FAERS Safety Report 4325627-7 (Version None)
Quarter: 2004Q1

REPORT INFORMATION
  Report Type: 
  Country: None (occurrence: None)
  Receive Date: 20040324
  Receipt Date: 20040316
  Transmission Date: 20041129
  Serious: Yes (Death)
  Sender: FDA-Public Use
  Company Number: 163-20785-04020482

PATIENT
  Age: 73 Year
  Sex: Male

DRUGS (1)
  1. THALOMID [Suspect]
     Indication: MYELOFIBROSIS
     Dosage: 50 MG, QHS, ORAL
     Route: 048
     Dates: start: 20030516, end: 20030722

REACTIONS (3)
  - FALL [None]
  - LEUKAEMIA [None]
  - SUBDURAL HAEMATOMA [None]
